FAERS Safety Report 7776782-8 (Version None)
Quarter: 2011Q3

REPORT INFORMATION
  Report Type: 
  Country: None (occurrence: None)
  Receive Date: 20110926
  Receipt Date: 20110913
  Transmission Date: 20111222
  Serious: Yes (Hospitalization)
  Sender: FDA-Public Use
  Company Number: DE-JNJFOC-20110906290

PATIENT
  Sex: Female
  Weight: 57 kg

DRUGS (6)
  1. INFLIXIMAB, RECOMBINANT [Suspect]
     Indication: CROHN'S DISEASE
     Route: 042
     Dates: start: 20060302, end: 20090310
  2. MESALAMINE [Concomitant]
     Route: 048
  3. MESALAMINE [Concomitant]
     Route: 054
  4. METHOTREXATE [Concomitant]
  5. CIMZIA [Concomitant]
     Dates: start: 20110809
  6. ZINC [Concomitant]

REACTIONS (1)
  - CROHN'S DISEASE [None]
